FAERS Safety Report 13596983 (Version 1)
Quarter: 2017Q2

REPORT INFORMATION
  Report Type: Report from Study
  Country: US (occurrence: US)
  Receive Date: 20170531
  Receipt Date: 20170531
  Transmission Date: 20170830
  Serious: Yes (Life-Threatening)
  Sender: FDA-Public Use
  Company Number: US-BAYER-2017-098840

PATIENT
  Age: 17 Year
  Sex: Male

DRUGS (7)
  1. LOPERAMIDE [Suspect]
     Active Substance: LOPERAMIDE
     Dosage: UNK
  2. ACETAMINOPHEN. [Suspect]
     Active Substance: ACETAMINOPHEN
  3. LORATADINE. [Suspect]
     Active Substance: LORATADINE
     Dosage: UNK
  4. GUAIFENESIN. [Suspect]
     Active Substance: GUAIFENESIN
  5. IBUPROFEN. [Suspect]
     Active Substance: IBUPROFEN
  6. DEXTROMETHORPHAN HYDROBROMIDE. [Suspect]
     Active Substance: DEXTROMETHORPHAN HYDROBROMIDE
     Dosage: UNK
  7. PROMETHAZINE [Suspect]
     Active Substance: PROMETHAZINE\PROMETHAZINE HYDROCHLORIDE
     Dosage: UNK

REACTIONS (11)
  - Electrolyte imbalance [None]
  - Suicide attempt [None]
  - Irritability [None]
  - Confusional state [None]
  - Conduction disorder [None]
  - Vomiting [None]
  - Somnolence [None]
  - Lethargy [None]
  - Agitation [None]
  - Respiratory depression [None]
  - Dyspnoea [None]
